FAERS Safety Report 7054745-8 (Version None)
Quarter: 2010Q4

REPORT INFORMATION
  Report Type: 
  Country: None (occurrence: None)
  Receive Date: 20101018
  Receipt Date: 20101012
  Transmission Date: 20110411
  Serious: Yes (Hospitalization)
  Sender: FDA-Public Use
  Company Number: WAES 1010USA01200

PATIENT
  Age: 72 Year
  Sex: Male
  Weight: 90.7194 kg

DRUGS (39)
  1. SINEMET [Suspect]
     Indication: PARKINSON'S DISEASE
     Dosage: 25 MG-100 MG/Q4H/PO
     Route: 048
  2. SINEMET [Suspect]
     Indication: RHEUMATOID ARTHRITIS
     Dosage: 25 MG-100 MG/Q4H/PO
     Route: 048
  3. CAP BLINDED THERAPY UNK [Suspect]
     Indication: OSTEOARTHRITIS
     Dosage: PO
     Route: 048
     Dates: start: 20080121
  4. CAP BLINDED THERAPY UNK [Suspect]
     Indication: RHEUMATOID ARTHRITIS
     Dosage: PO
     Route: 048
     Dates: start: 20080121
  5. CAP BLINDED THERAPY UNK [Suspect]
     Indication: OSTEOARTHRITIS
     Dosage: PO
     Route: 048
     Dates: start: 20080121
  6. CAP BLINDED THERAPY UNK [Suspect]
     Indication: RHEUMATOID ARTHRITIS
     Dosage: PO
     Route: 048
     Dates: start: 20080121
  7. CAP BLINDED THERAPY UNK [Suspect]
     Indication: OSTEOARTHRITIS
     Dosage: PO
     Route: 048
     Dates: start: 20080121
  8. CAP BLINDED THERAPY UNK [Suspect]
     Indication: RHEUMATOID ARTHRITIS
     Dosage: PO
     Route: 048
     Dates: start: 20080121
  9. ADVAIR DISKUS 100/50 [Concomitant]
  10. CRESTOR [Concomitant]
  11. DARVON [Concomitant]
  12. DEPAKOTE [Concomitant]
  13. FOSAMAX [Concomitant]
  14. INDERAL [Concomitant]
  15. LASIX [Concomitant]
  16. LOTREL [Concomitant]
  17. MS CONTIN [Concomitant]
  18. MORPHINE SULFATE [Concomitant]
  19. NEXIUM [Concomitant]
  20. PLAVIX [Concomitant]
  21. RANEXA [Concomitant]
  22. REGLAN [Concomitant]
  23. REQUIP [Concomitant]
  24. SPIRIVA [Concomitant]
  25. ZANTAC [Concomitant]
  26. ZOLOFT [Concomitant]
  27. ASPIRIN [Concomitant]
  28. CLOTRIMAZOLE [Concomitant]
  29. CYCLOBENZAPRINE HCL [Concomitant]
  30. GABAPENTIN [Concomitant]
  31. HYOSCYAMINE [Concomitant]
  32. ISOSORBIDE DINITRATE [Concomitant]
  33. METOPROLOL TARTRATE [Concomitant]
  34. OXYGEN [Concomitant]
  35. PENTOXIFYLLINE [Concomitant]
  36. SERTRALINE HYDROCHLORIDE [Concomitant]
  37. SIMVASTATIN [Concomitant]
  38. TAMSULOSIN HYDROCHLORIDE [Concomitant]
  39. TRAMADOL HYDROCHLORIDE [Concomitant]

REACTIONS (14)
  - ANAEMIA [None]
  - BLOOD SODIUM DECREASED [None]
  - CONFUSIONAL STATE [None]
  - CORONARY ARTERY DISEASE [None]
  - DYSURIA [None]
  - FALL [None]
  - GAIT DISTURBANCE [None]
  - HALLUCINATION [None]
  - MENTAL STATUS CHANGES [None]
  - MUSCULAR WEAKNESS [None]
  - PAIN [None]
  - RENAL FAILURE ACUTE [None]
  - URINARY TRACT INFECTION [None]
  - VASCULAR DEMENTIA [None]
